FAERS Safety Report 14688336 (Version 1)
Quarter: 2018Q1

REPORT INFORMATION
  Report Type: Report from Study
  Country: GB (occurrence: GB)
  Receive Date: 20180328
  Receipt Date: 20180328
  Transmission Date: 20180509
  Serious: Yes (Death, Hospitalization)
  Sender: FDA-Public Use
  Company Number: GB-ROCHE-2092267

PATIENT
  Sex: Female

DRUGS (1)
  1. TOCILIZUMAB. [Suspect]
     Active Substance: TOCILIZUMAB
     Indication: RHEUMATOID ARTHRITIS
     Route: 065
     Dates: start: 20170607, end: 20170607

REACTIONS (4)
  - Acute coronary syndrome [Unknown]
  - Percutaneous coronary intervention [Unknown]
  - Cardiogenic shock [Unknown]
  - Death [Fatal]

NARRATIVE: CASE EVENT DATE: 20170725
